FAERS Safety Report 12211848 (Version 1)
Quarter: 2016Q1

REPORT INFORMATION
  Report Type: Spontaneous
  Country: GB (occurrence: GB)
  Receive Date: 20160325
  Receipt Date: 20160325
  Transmission Date: 20160526
  Serious: Yes (Other)
  Sender: FDA-Public Use
  Company Number: GB-TEVA-646621ACC

PATIENT
  Sex: Female

DRUGS (1)
  1. ALENDRONIC ACID [Suspect]
     Active Substance: ALENDRONIC ACID
     Route: 065

REACTIONS (4)
  - Pain in jaw [Unknown]
  - Feeding disorder [Unknown]
  - Post procedural complication [Unknown]
  - Osteorrhagia [Unknown]
